FAERS Safety Report 13132055 (Version 1)
Quarter: 2017Q1

REPORT INFORMATION
  Report Type: Spontaneous
  Country: US (occurrence: US)
  Receive Date: 20170119
  Receipt Date: 20170119
  Transmission Date: 20170428
  Serious: Yes (Hospitalization)
  Sender: FDA-Public Use
  Company Number: US-ARBOR PHARMACEUTICALS, LLC-US-2017ARB000140

PATIENT

DRUGS (1)
  1. E.E.S. [Suspect]
     Active Substance: ERYTHROMYCIN ETHYLSUCCINATE
     Indication: GASTROINTESTINAL MOTILITY DISORDER
     Dosage: MONTHLY

REACTIONS (3)
  - Incorrect product storage [Unknown]
  - Hospitalisation [Unknown]
  - Product use issue [Unknown]
